FAERS Safety Report 13906673 (Version 2)
Quarter: 2017Q3

REPORT INFORMATION
  Report Type: Spontaneous
  Country: US (occurrence: US)
  Receive Date: 20170825
  Receipt Date: 20170917
  Transmission Date: 20171127
  Serious: Yes (Hospitalization)
  Sender: FDA-Public Use
  Company Number: US-009507513-1708USA010042

PATIENT
  Sex: Female

DRUGS (1)
  1. KEYTRUDA [Suspect]
     Active Substance: PEMBROLIZUMAB
     Indication: SALIVARY GLAND CANCER
     Dosage: 200 MG, EVERY 3 WEEKS
     Route: 042

REACTIONS (2)
  - Off label use [Unknown]
  - Liver function test increased [Recovered/Resolved]
